FAERS Safety Report 6219155-1 (Version None)
Quarter: 2009Q2

REPORT INFORMATION
  Report Type: 
  Country: None (occurrence: None)
  Receive Date: 20090609
  Receipt Date: 20090602
  Transmission Date: 20091009
  Serious: Yes (Other)
  Sender: FDA-Public Use
  Company Number: BR-BAYER-200917015LA

PATIENT
  Age: 59 Year
  Sex: Female

DRUGS (2)
  1. BETAFERON [Suspect]
     Indication: MULTIPLE SCLEROSIS
     Dosage: TOTAL DAILY DOSE: 8 MIU
     Route: 058
     Dates: start: 20070101
  2. ARCOXIA [Concomitant]
     Indication: OSTEOARTHRITIS
     Dosage: 1 TABLET AS NEEDED
     Route: 048
     Dates: start: 20000101

REACTIONS (2)
  - RETINAL DETACHMENT [None]
  - VISION BLURRED [None]
